FAERS Safety Report 4883023-8 (Version None)
Quarter: 2005Q4

REPORT INFORMATION
  Report Type: 
  Country: None (occurrence: None)
  Receive Date: 20051201
  Receipt Date: 20050907
  Transmission Date: 20060501
  Serious: No
  Sender: FDA-Public Use
  Company Number: 2005PV001761

PATIENT
  Age: 53 Year
  Sex: Female
  Weight: 114.3065 kg

DRUGS (10)
  1. BYETTA [Suspect]
     Indication: DIABETES MELLITUS NON-INSULIN-DEPENDENT
     Dosage: SEE IMAGE
     Route: 058
     Dates: start: 20050717, end: 20050817
  2. BYETTA [Suspect]
     Indication: DIABETES MELLITUS NON-INSULIN-DEPENDENT
     Dosage: SEE IMAGE
     Route: 058
     Dates: start: 20050818
  3. GLYBURIDE [Concomitant]
  4. DIOVAN [Concomitant]
  5. PLAVIX [Concomitant]
  6. LASIX [Concomitant]
  7. POTASSIUM CHLORIDE [Concomitant]
  8. PROTONIX [Concomitant]
  9. VITAMIN B COMPLEX CAP [Concomitant]
  10. MULTIVITAMIN [Concomitant]

REACTIONS (3)
  - DECREASED APPETITE [None]
  - DRUG INEFFECTIVE [None]
  - WEIGHT DECREASED [None]
